FAERS Safety Report 20932567 (Version 1)
Quarter: 2022Q2

REPORT INFORMATION
  Report Type: Spontaneous
  Country: CN (occurrence: CN)
  Receive Date: 20220608
  Receipt Date: 20220608
  Transmission Date: 20220721
  Serious: Yes (Other)
  Sender: FDA-Public Use
  Company Number: CN-PFIZER INC-202200773053

PATIENT
  Age: 87 Year
  Sex: Female
  Weight: 40 kg

DRUGS (12)
  1. VORICONAZOLE [Suspect]
     Active Substance: VORICONAZOLE
     Dosage: 100 MG, 2X/DAY
     Route: 045
  2. VORICONAZOLE [Suspect]
     Active Substance: VORICONAZOLE
     Dosage: 50 MG, 2X/DAY
     Route: 045
  3. VORICONAZOLE [Suspect]
     Active Substance: VORICONAZOLE
     Dosage: 100 MG IN THE MORNING AND 50 MG IN THE EVENING
     Route: 045
  4. ESOMEPRAZOLE [Concomitant]
     Active Substance: ESOMEPRAZOLE
     Route: 048
  5. CEFMINOX SODIUM [Concomitant]
     Active Substance: CEFMINOX SODIUM
  6. AMBROXOL [Concomitant]
     Active Substance: AMBROXOL
  7. DOXOFYLLINE [Concomitant]
     Active Substance: DOXOFYLLINE
  8. EUCALYPTOL LIMONENE PINENE [Concomitant]
  9. TRIMETAZIDINE [Concomitant]
     Active Substance: TRIMETAZIDINE
  10. MONTELUKAST SODIUM [Concomitant]
     Active Substance: MONTELUKAST SODIUM
  11. NICORANDIL [Concomitant]
     Active Substance: NICORANDIL
  12. REBAMIPIDE [Concomitant]
     Active Substance: REBAMIPIDE

REACTIONS (4)
  - Muscle tightness [Recovered/Resolved]
  - Agitation [Recovered/Resolved]
  - Initial insomnia [Recovered/Resolved]
  - Off label use [Unknown]
